FAERS Safety Report 16300070 (Version 1)
Quarter: 2019Q2

REPORT INFORMATION
  Report Type: Spontaneous
  Country: BR (occurrence: BR)
  Receive Date: 20190510
  Receipt Date: 20190510
  Transmission Date: 20190711
  Serious: Yes (Hospitalization)
  Sender: FDA-Public Use
  Company Number: BR-NAPPMUNDI-GBR-2019-0066420

PATIENT
  Age: 56 Year
  Sex: Female

DRUGS (4)
  1. SLOW K [Concomitant]
     Active Substance: POTASSIUM CHLORIDE
     Dosage: 1 TABLET, DAILY
     Route: 048
  2. LOSARTAN. [Concomitant]
     Active Substance: LOSARTAN
     Indication: HYPERTENSION
     Dosage: 1 TABLET, DAILY
     Route: 048
  3. RESTIVA [Suspect]
     Active Substance: BUPRENORPHINE
     Indication: PAIN
     Dosage: 10 MCG, Q1H (STRENGTH 10 MG)
     Route: 062
     Dates: start: 20190427, end: 20190429
  4. INDAPAMIDE. [Concomitant]
     Active Substance: INDAPAMIDE
     Indication: HYPERTENSION
     Dosage: 1 TABLET, DAILY
     Route: 048

REACTIONS (15)
  - Musculoskeletal stiffness [Unknown]
  - Syncope [Unknown]
  - Decreased appetite [Not Recovered/Not Resolved]
  - Asthenia [Not Recovered/Not Resolved]
  - Dyspnoea [Unknown]
  - Vision blurred [Unknown]
  - Blood pressure abnormal [Unknown]
  - Paraesthesia [Unknown]
  - Weight decreased [Not Recovered/Not Resolved]
  - Blood potassium decreased [Unknown]
  - Blood glucose increased [Unknown]
  - Fatigue [Not Recovered/Not Resolved]
  - Dysarthria [Unknown]
  - Dizziness [Not Recovered/Not Resolved]
  - Nausea [Not Recovered/Not Resolved]

NARRATIVE: CASE EVENT DATE: 20190429
